FAERS Safety Report 7394917-6 (Version None)
Quarter: 2011Q2

REPORT INFORMATION
  Report Type: 
  Country: None (occurrence: None)
  Receive Date: 20110405
  Receipt Date: 20110329
  Transmission Date: 20111010
  Serious: Yes (Hospitalization)
  Sender: FDA-Public Use
  Company Number: B0710141A

PATIENT
  Sex: Female
  Weight: 16.3 kg

DRUGS (23)
  1. BIOFERMIN R [Concomitant]
     Route: 048
     Dates: start: 20090228, end: 20090302
  2. HEPARIN SODIUM [Concomitant]
     Dates: start: 20090226, end: 20090409
  3. FUNGUARD [Concomitant]
     Route: 042
     Dates: start: 20090305, end: 20090311
  4. MORPHINE HYDROCHLORIDE [Concomitant]
     Dosage: 1IUAX PER DAY
     Dates: start: 20090306, end: 20090323
  5. ALKERAN [Suspect]
     Dosage: 35MG PER DAY
     Route: 042
     Dates: start: 20090305, end: 20090306
  6. THIOTEPA [Suspect]
     Indication: STEM CELL TRANSPLANT
     Dosage: 140MG PER DAY
     Dates: start: 20090226, end: 20090227
  7. ALPINY [Concomitant]
     Indication: PAIN
     Route: 054
     Dates: start: 20090305, end: 20090314
  8. VALPROIC ACID [Concomitant]
     Route: 048
  9. SIMPLE SYRUP [Concomitant]
     Route: 048
     Dates: end: 20090522
  10. WHITE SOFT PARAFFIN [Concomitant]
     Route: 061
     Dates: start: 20090226, end: 20090305
  11. ADSORBIN [Concomitant]
     Route: 048
     Dates: start: 20090228, end: 20090325
  12. LOTION [Concomitant]
     Dosage: 5IUAX PER DAY
     Route: 061
     Dates: start: 20090305, end: 20090307
  13. SOLDEM [Concomitant]
     Route: 042
     Dates: start: 20090226, end: 20090403
  14. ZOFRAN [Concomitant]
     Dosage: 2IUAX PER DAY
     Route: 042
     Dates: start: 20090226, end: 20090307
  15. ALKERAN [Suspect]
     Indication: STEM CELL TRANSPLANT
     Dosage: 50MG PER DAY
     Route: 042
     Dates: start: 20090226, end: 20090227
  16. POLARAMINE [Concomitant]
     Route: 042
     Dates: start: 20090302, end: 20090519
  17. THIOTEPA [Suspect]
     Dosage: 100MG PER DAY
     Dates: start: 20090305, end: 20090306
  18. BAKTAR [Concomitant]
     Dosage: 3G PER DAY
     Route: 048
     Dates: end: 20090522
  19. SOLDEM 3A [Concomitant]
     Route: 042
     Dates: start: 20090226, end: 20090520
  20. FLUMARIN [Concomitant]
     Route: 042
     Dates: start: 20090305, end: 20090508
  21. URSO 250 [Concomitant]
     Route: 048
     Dates: end: 20090407
  22. WYPAX [Concomitant]
     Dosage: 1MG PER DAY
     Route: 048
     Dates: end: 20090507
  23. HYALEIN [Concomitant]
     Dosage: 1IUAX PER DAY
     Route: 031
     Dates: start: 20090306, end: 20090306

REACTIONS (1)
  - BACTERIAL INFECTION [None]
